FAERS Safety Report 22023715 (Version 5)
Quarter: 2023Q2

REPORT INFORMATION
  Report Type: Report from Study
  Country: PK (occurrence: PK)
  Receive Date: 20230223
  Receipt Date: 20230519
  Transmission Date: 20230722
  Serious: Yes (Death, Hospitalization, Other)
  Sender: FDA-Public Use
  Company Number: PK-SA-SAC20230222000126

PATIENT
  Age: 2 Year
  Sex: Male
  Weight: 14 kg

DRUGS (1)
  1. OLIPUDASE ALFA-RPCP [Suspect]
     Active Substance: OLIPUDASE ALFA-RPCP
     Indication: Niemann-Pick disease
     Dosage: 0.1 MG/KG, QOW
     Route: 042
     Dates: start: 20230216, end: 20230216

REACTIONS (14)
  - Respiratory failure [Fatal]
  - Respiratory distress [Fatal]
  - Condition aggravated [Fatal]
  - Rales [Fatal]
  - Oxygen saturation decreased [Fatal]
  - Lung infiltration [Fatal]
  - Metabolic acidosis [Fatal]
  - Heart rate increased [Fatal]
  - Hypotension [Fatal]
  - Cough [Fatal]
  - Cyanosis [Fatal]
  - Pyrexia [Unknown]
  - Incorrect dose administered [Unknown]
  - Overdose [Unknown]

NARRATIVE: CASE EVENT DATE: 20230216
